FAERS Safety Report 4613252-X (Version None)
Quarter: 2005Q1

REPORT INFORMATION
  Report Type: 
  Country: None (occurrence: None)
  Receive Date: 20050315
  Receipt Date: 20050228
  Transmission Date: 20050727
  Serious: No
  Sender: FDA-Public Use
  Company Number: US_0502112536

PATIENT
  Age: 4 Year
  Sex: Male
  Weight: 16 kg

DRUGS (1)
  1. CIALIS [Suspect]
     Dates: start: 20050211

REACTIONS (1)
  - ACCIDENTAL OVERDOSE [None]
